FAERS Safety Report 14436044 (Version 1)
Quarter: 2018Q1

REPORT INFORMATION
  Report Type: Spontaneous
  Country: US (occurrence: US)
  Receive Date: 20180124
  Receipt Date: 20180124
  Transmission Date: 20180509
  Serious: Yes (Other)
  Sender: FDA-Public Use
  Company Number: None

PATIENT
  Age: 57 Year
  Sex: Female
  Weight: 69.75 kg

DRUGS (3)
  1. LDN (LOW-DOSE NALTREXONE) [Suspect]
     Active Substance: NALTREXONE
     Indication: COMPLEX REGIONAL PAIN SYNDROME
     Route: 048
     Dates: start: 20171114, end: 20171231
  2. BACLOFEN. [Concomitant]
     Active Substance: BACLOFEN
  3. VALUIM [Concomitant]

REACTIONS (2)
  - Alopecia [None]
  - Tinnitus [None]

NARRATIVE: CASE EVENT DATE: 20180116
